FAERS Safety Report 5997690-9 (Version None)
Quarter: 2008Q4

REPORT INFORMATION
  Report Type: 
  Country: None (occurrence: None)
  Receive Date: 20081212
  Receipt Date: 20081118
  Transmission Date: 20090506
  Serious: No
  Sender: FDA-Public Use
  Company Number: US-ABBOTT-08P-163-0488615-00

PATIENT
  Sex: Female
  Weight: 61.29 kg

DRUGS (2)
  1. HUMIRA [Suspect]
     Indication: CROHN'S DISEASE
     Route: 058
     Dates: start: 20071101, end: 20081001
  2. BUDESONIDE [Concomitant]
     Indication: CROHN'S DISEASE
     Route: 048
     Dates: start: 20081119

REACTIONS (3)
  - DIARRHOEA [None]
  - INFLAMMATION [None]
  - PAIN [None]
